FAERS Safety Report 8075887-4 (Version None)
Quarter: 2012Q1

REPORT INFORMATION
  Report Type: 
  Country: None (occurrence: None)
  Receive Date: 20120127
  Receipt Date: 20120124
  Transmission Date: 20120608
  Serious: Yes (Hospitalization)
  Sender: FDA-Public Use
  Company Number: FR-SANOFI-AVENTIS-2011SA055496

PATIENT
  Age: 53 Year
  Sex: Male

DRUGS (10)
  1. KAYEXALATE [Suspect]
     Route: 048
     Dates: start: 20110603
  2. CALCIUM CARBONATE [Suspect]
  3. ARANESP [Suspect]
  4. CALCIPARINE [Suspect]
     Dates: start: 20110708, end: 20110808
  5. EUPRESSYL [Suspect]
     Route: 048
     Dates: start: 20110529
  6. PREDNISONE TAB [Suspect]
     Dates: start: 20110501
  7. RENAGEL [Suspect]
     Route: 048
  8. CITALOPRAM HYDROBROMIDE [Suspect]
     Route: 048
  9. KEPPRA [Concomitant]
  10. DEPAKENE [Suspect]
     Indication: EPILEPSY
     Route: 048
     Dates: start: 20110716

REACTIONS (3)
  - ANAEMIA [None]
  - RENAL FAILURE [None]
  - THROMBOCYTOPENIA [None]
